FAERS Safety Report 7391668-9 (Version None)
Quarter: 2011Q2

REPORT INFORMATION
  Report Type: 
  Country: None (occurrence: None)
  Receive Date: 20110404
  Receipt Date: 20110328
  Transmission Date: 20111010
  Serious: Yes (Hospitalization)
  Sender: FDA-Public Use
  Company Number: GB-PFIZER INC-2011069397

PATIENT
  Age: 32 Year
  Sex: Female
  Weight: 57.5 kg

DRUGS (18)
  1. FLUCLOXACILLIN [Concomitant]
     Dosage: 1 G, 2X/DAY
  2. IBUPROFEN [Concomitant]
     Dosage: 400 MG, AS NEEDED
  3. TERBUTALINE [Concomitant]
     Dosage: UNK
     Route: 055
  4. CEFOXITIN [Suspect]
     Indication: MYCOBACTERIUM ABSCESSUS INFECTION
     Dosage: 2.4 MG, 2X/DAY
     Route: 042
     Dates: start: 20110207, end: 20110227
  5. IMIPENEM [Suspect]
     Indication: MYCOBACTERIUM ABSCESSUS INFECTION
     Dosage: 500 MG, 4X/DAY
     Route: 042
     Dates: start: 20110208, end: 20110227
  6. DEOXYRIBONUCLEASE HUMAN [Concomitant]
     Dosage: 2.5 MG, 1X/DAY
  7. COLOMYCIN [Concomitant]
     Dosage: 2 MG, 2X/DAY
     Dates: end: 20110209
  8. TIGECYCLINE [Suspect]
     Indication: MYCOBACTERIUM ABSCESSUS INFECTION
     Dosage: 50 MG, 2X/DAY
     Route: 042
     Dates: start: 20110208, end: 20110227
  9. AMIKACIN [Suspect]
     Indication: MYCOBACTERIUM ABSCESSUS INFECTION
     Dosage: 450 MG, 2X/DAY
     Route: 042
     Dates: start: 20110207, end: 20110227
  10. CLARITHROMYCIN [Concomitant]
     Dosage: 500 MG, 2X/DAY
     Route: 048
     Dates: start: 20110208
  11. MOXIFLOXACIN [Concomitant]
     Dosage: 400 MG, 1X/DAY
     Route: 048
     Dates: start: 20110208
  12. OMEPRAZOLE [Concomitant]
     Dosage: 40 MG, 1X/DAY
     Route: 048
     Dates: start: 20110214
  13. RHINOCORT [Concomitant]
  14. SPIRIVA [Concomitant]
     Dosage: 2 DF, 1X/DAY
  15. ONDANSETRON [Concomitant]
     Dosage: 4 MG, AS NEEDED
  16. PARACETAMOL [Concomitant]
     Dosage: 1 G, AS NEEDED
  17. SERETIDE [Concomitant]
     Dosage: 250 MG, 2X/DAY
  18. VITAMIN K TAB [Concomitant]
     Dosage: 10 MG, 1X/DAY

REACTIONS (7)
  - PALLOR [None]
  - ERYTHEMA [None]
  - SWELLING [None]
  - SWOLLEN TONGUE [None]
  - LIP SWELLING [None]
  - SWELLING FACE [None]
  - URTICARIA [None]
